FAERS Safety Report 6593197-9 (Version None)
Quarter: 2010Q1

REPORT INFORMATION
  Report Type: 
  Country: None (occurrence: None)
  Receive Date: 20100212
  Receipt Date: 20100126
  Transmission Date: 20100710
  Serious: Yes (Death, Life-Threatening, Hospitalization)
  Sender: FDA-Public Use
  Company Number: 008609

PATIENT
  Age: 48 Year
  Sex: Male

DRUGS (21)
  1. PLETAL [Suspect]
     Indication: ARTERIOSCLEROSIS OBLITERANS
     Dosage: 50 MG, BID, ORAL
     Route: 048
     Dates: end: 20070311
  2. OPALMON (LIMAPROST ALFADEX) TABLET [Suspect]
     Dosage: ORAL
     Route: 048
     Dates: end: 20070311
  3. GLAKAY (MENATETRENONE) CAPSULE [Concomitant]
  4. METHYCOBAL (MECOBALAMIN) [Concomitant]
  5. MUCOSTA (REBAMIPIDE) [Concomitant]
  6. TIZANIDINE HCL [Concomitant]
  7. JUVELA (TOCOPHEROL ACETATE) [Concomitant]
  8. LANSOPRAZOLE [Concomitant]
  9. RENAGEL [Concomitant]
  10. NIRENA (NIFEDIPINE) TABLET [Concomitant]
  11. ALDOMET (METHYLDOPA) TABLET [Concomitant]
  12. VERAPAMIL HYDROCHLORIDE [Concomitant]
  13. CAPTORIL (CAPTOPRIL) [Concomitant]
  14. CANDESARTAN CILEXETIL [Concomitant]
  15. LANIRAPID (METILDIGOXIN) TABLET [Concomitant]
  16. LOPERAMIDE HCL [Concomitant]
  17. KARY UNI (PIRENOXINE) EYE DROPS [Concomitant]
  18. PREDNISOLONE [Concomitant]
  19. CYCLOSPORINE [Concomitant]
  20. MYCOPHENOLATE MOFETIL [Concomitant]
  21. BASILIXIMAB (GENETICAL RECOMBINATION) (BASILIXIMAB (GENETICAL RECOMBIN [Concomitant]

REACTIONS (10)
  - BLOOD PRESSURE DECREASED [None]
  - COAGULOPATHY [None]
  - COMPLICATIONS OF TRANSPLANTED KIDNEY [None]
  - DISSEMINATED INTRAVASCULAR COAGULATION [None]
  - GASTROINTESTINAL OEDEMA [None]
  - HAEMORRHAGE [None]
  - RENAL ARTERY ARTERIOSCLEROSIS [None]
  - RENAL TRANSPLANT [None]
  - RENAL TUBULAR DISORDER [None]
  - RENAL TUBULAR NECROSIS [None]
